FAERS Safety Report 10938412 (Version 2)
Quarter: 2015Q2

REPORT INFORMATION
  Report Type: Spontaneous
  Country: US (occurrence: US)
  Receive Date: 20150321
  Receipt Date: 20150525
  Transmission Date: 20150821
  Serious: No
  Sender: FDA-Public Use
  Company Number: US-JNJFOC-20131208604

PATIENT
  Sex: Female

DRUGS (7)
  1. METHOTREXATE [Concomitant]
     Active Substance: METHOTREXATE
     Indication: PSORIASIS
     Route: 048
  2. SORIATANE [Concomitant]
     Active Substance: ACITRETIN
     Route: 065
  3. TAR [Concomitant]
     Active Substance: TAR
     Route: 065
  4. TACLONEX [Concomitant]
     Active Substance: BETAMETHASONE DIPROPIONATE\CALCIPOTRIENE\CALCIPOTRIENE HYDRATE
     Route: 065
  5. ACCUTANE [Concomitant]
     Active Substance: ISOTRETINOIN
     Route: 065
  6. STELARA [Suspect]
     Active Substance: USTEKINUMAB
     Indication: PSORIASIS
     Dosage: ABOUT 6 MONTHS AGO
     Route: 058
     Dates: start: 2013
  7. ANTHRALIN [Concomitant]
     Active Substance: ANTHRALIN
     Route: 065

REACTIONS (1)
  - Psoriasis [Not Recovered/Not Resolved]

NARRATIVE: CASE EVENT DATE: 2013
